FAERS Safety Report 7342951-4 (Version None)
Quarter: 2011Q1

REPORT INFORMATION
  Report Type: 
  Country: None (occurrence: None)
  Receive Date: 20110310
  Receipt Date: 20110224
  Transmission Date: 20110831
  Serious: Yes (Other)
  Sender: FDA-Public Use
  Company Number: PHHY2011IS09184

PATIENT
  Sex: Female

DRUGS (3)
  1. NEXIUM [Concomitant]
     Indication: GASTROOESOPHAGEAL REFLUX DISEASE
  2. ACLASTA [Suspect]
     Indication: OSTEONECROSIS
     Dates: start: 20110118
  3. STEROIDS NOS [Concomitant]

REACTIONS (13)
  - AXILLARY PAIN [None]
  - MOVEMENT DISORDER [None]
  - INFLUENZA LIKE ILLNESS [None]
  - MYALGIA [None]
  - PAIN IN EXTREMITY [None]
  - ARTHRALGIA [None]
  - PAIN IN JAW [None]
  - SWELLING FACE [None]
  - ORAL PAIN [None]
  - LYMPHADENITIS [None]
  - CHEST PAIN [None]
  - MUSCULOSKELETAL STIFFNESS [None]
  - NECK PAIN [None]
